FAERS Safety Report 9016704 (Version 1)
Quarter: 2013Q1

REPORT INFORMATION
  Report Type: Spontaneous
  Country: US (occurrence: US)
  Receive Date: 20130116
  Receipt Date: 20130116
  Transmission Date: 20140127
  Serious: No
  Sender: FDA-Public Use
  Company Number: US-009507513-1301USA006545

PATIENT
  Age: 23 Year
  Sex: Female

DRUGS (2)
  1. CLARITIN [Suspect]
     Dosage: 2 DF, UNK
     Route: 048
     Dates: start: 20121207
  2. LORATADINE [Suspect]
     Dosage: 3 DF, UNK
     Route: 048
     Dates: start: 20121207

REACTIONS (1)
  - Overdose [Unknown]
